FAERS Safety Report 4311615-3 (Version None)
Quarter: 2004Q1

REPORT INFORMATION
  Report Type: 
  Country: None (occurrence: None)
  Receive Date: 20040304
  Receipt Date: 20040213
  Transmission Date: 20041129
  Serious: Yes (Other)
  Sender: FDA-Public Use
  Company Number: US-ROCHE-359928

PATIENT
  Age: 45 Year
  Sex: Male
  Weight: 85.2 kg

DRUGS (7)
  1. INTERFERON ALFA-2A [Suspect]
     Route: 058
     Dates: start: 20010122
  2. RIBAVIRIN [Suspect]
     Route: 048
     Dates: start: 20010122
  3. D4T [Concomitant]
  4. 3TC [Concomitant]
  5. BACTRIM [Concomitant]
  6. DOXYCYCLINE [Concomitant]
  7. NEXIUM [Concomitant]
     Dates: start: 20010307

REACTIONS (3)
  - ABDOMINAL DISCOMFORT [None]
  - BLOOD CREATINE PHOSPHOKINASE ABNORMAL [None]
  - DIARRHOEA [None]
